FAERS Safety Report 18757235 (Version 1)
Quarter: 2021Q1

REPORT INFORMATION
  Report Type: Spontaneous
  Country: NL (occurrence: NL)
  Receive Date: 20210119
  Receipt Date: 20210119
  Transmission Date: 20210419
  Serious: Yes (Hospitalization, Other)
  Sender: FDA-Public Use
  Company Number: NVSC2021NL002715

PATIENT
  Age: 72 Year
  Sex: Male

DRUGS (13)
  1. LORAZEPAM. [Concomitant]
     Active Substance: LORAZEPAM
     Dosage: 1 MG, QD (AT NIGHT)
     Route: 065
  2. FRAXIPARINE [Concomitant]
     Active Substance: NADROPARIN CALCIUM
     Indication: PULMONARY EMBOLISM
     Dosage: UNK (THERAPEUTIC, 2DD1 7600IE)
     Route: 065
  3. AMIODARONE [Concomitant]
     Active Substance: AMIODARONE
     Indication: ARRHYTHMIA
     Dosage: UNK
     Route: 065
  4. RIVAROXABAN [Interacting]
     Active Substance: RIVAROXABAN
     Indication: ARRHYTHMIA
     Dosage: 15 MG, 2DD(ON POSTOPERATIVE DAY 13)
     Route: 065
  5. RIVAROXABAN [Interacting]
     Active Substance: RIVAROXABAN
     Indication: PULMONARY EMBOLISM
  6. CARBOPLATIN. [Suspect]
     Active Substance: CARBOPLATIN
     Indication: OESOPHAGEAL SQUAMOUS CELL CARCINOMA
     Dosage: UNK (RECEIVED 5 CYCLES)
     Route: 065
  7. CARBASALATE CALCIUM [Concomitant]
     Active Substance: CARBASPIRIN CALCIUM
     Indication: PRODUCT USED FOR UNKNOWN INDICATION
     Dosage: 100 MG, QD
     Route: 065
  8. ROSUVASTATINE [Concomitant]
     Active Substance: ROSUVASTATIN
     Indication: PRODUCT USED FOR UNKNOWN INDICATION
     Dosage: 5 MG, QD
     Route: 065
  9. LORAZEPAM. [Concomitant]
     Active Substance: LORAZEPAM
     Indication: ANXIETY
     Dosage: 10 MG (1DD)
     Route: 065
  10. QUETIAPINE. [Suspect]
     Active Substance: QUETIAPINE
     Indication: ANXIETY
     Dosage: 12.5 MG (1DD)
     Route: 065
  11. PERINDOPRIL [Concomitant]
     Active Substance: PERINDOPRIL
     Indication: PRODUCT USED FOR UNKNOWN INDICATION
     Dosage: 2 MG, QD
     Route: 065
  12. ASCAL [Concomitant]
     Indication: PROPHYLAXIS
     Dosage: UNK
     Route: 065
  13. PACLITAXEL. [Suspect]
     Active Substance: PACLITAXEL
     Indication: OESOPHAGEAL SQUAMOUS CELL CARCINOMA
     Dosage: UNK, CYCLIC (RECEIVED 5 CYCLES)
     Route: 065

REACTIONS (4)
  - Drug interaction [Recovered/Resolved]
  - Pericardial effusion [Recovered/Resolved]
  - Product use in unapproved indication [Unknown]
  - Pleural effusion [Recovered/Resolved]
